FAERS Safety Report 15881136 (Version 2)
Quarter: 2019Q2

REPORT INFORMATION
  Report Type: Spontaneous
  Country: US (occurrence: US)
  Receive Date: 20190128
  Receipt Date: 20190516
  Transmission Date: 20190711
  Serious: Yes (Hospitalization)
  Sender: FDA-Public Use
  Company Number: US-ELI_LILLY_AND_COMPANY-US201901010895

PATIENT
  Age: 46 Year
  Sex: Male
  Weight: 110 kg

DRUGS (11)
  1. TALTZ [Suspect]
     Active Substance: IXEKIZUMAB
     Indication: PSORIATIC ARTHROPATHY
     Dosage: UNK, OTHER
     Route: 058
     Dates: start: 201901, end: 20190120
  2. UREA. [Concomitant]
     Active Substance: UREA
  3. VITAMIN D [COLECALCIFEROL] [Concomitant]
     Active Substance: CHOLECALCIFEROL
  4. TALTZ [Suspect]
     Active Substance: IXEKIZUMAB
     Indication: PSORIASIS
  5. GABAPENTIN. [Concomitant]
     Active Substance: GABAPENTIN
  6. CALCIPOTRIENE. [Concomitant]
     Active Substance: CALCIPOTRIENE
  7. BETAMETHASONE. [Concomitant]
     Active Substance: BETAMETHASONE
  8. SYNTHROID [Concomitant]
     Active Substance: LEVOTHYROXINE SODIUM
  9. IMIPRAMINE [Concomitant]
     Active Substance: IMIPRAMINE
  10. LAMOTRIGIN [Concomitant]
     Active Substance: LAMOTRIGINE
  11. LITHIUM. [Concomitant]
     Active Substance: LITHIUM

REACTIONS (2)
  - Pancytopenia [Recovered/Resolved]
  - Aphasia [Recovered/Resolved]
